FAERS Safety Report 7090718-7 (Version None)
Quarter: 2010Q4

REPORT INFORMATION
  Report Type: 
  Country: None (occurrence: None)
  Receive Date: 20101109
  Receipt Date: 20101105
  Transmission Date: 20110411
  Serious: Yes (Death)
  Sender: FDA-Public Use
  Company Number: GB-NOVOPROD-300375

PATIENT
  Sex: Female
  Weight: 93.1 kg

DRUGS (4)
  1. LANTUS [Suspect]
     Indication: TYPE 1 DIABETES MELLITUS
     Dosage: 30 IU, QD
     Route: 058
     Dates: start: 20091002, end: 20091102
  2. NOVORAPID FLEXPEN [Suspect]
     Indication: TYPE 1 DIABETES MELLITUS
     Dosage: 106 IU, QD
     Route: 058
     Dates: start: 20091002, end: 20091102
  3. SERETIDE                           /01420901/ [Concomitant]
     Indication: ASTHMA
     Dosage: 100 MG, QD
     Route: 048
     Dates: start: 20090119
  4. SALBUTAMOL [Concomitant]
     Indication: ASTHMA
     Dosage: 400 MG, QD
     Route: 048
     Dates: start: 20070120

REACTIONS (1)
  - SUDDEN DEATH [None]
